FAERS Safety Report 17370021 (Version 1)
Quarter: 2020Q1

REPORT INFORMATION
  Report Type: Spontaneous
  Country: US (occurrence: US)
  Receive Date: 20200205
  Receipt Date: 20200205
  Transmission Date: 20200409
  Serious: No
  Sender: FDA-Public Use
  Company Number: NVSC2020US029330

PATIENT
  Age: 61 Year
  Sex: Female

DRUGS (1)
  1. DOXYCYCLINE. [Suspect]
     Active Substance: DOXYCYCLINE
     Indication: RASH PRURITIC
     Dosage: UNK
     Route: 065

REACTIONS (1)
  - Drug ineffective for unapproved indication [Recovered/Resolved]
